FAERS Safety Report 5396820-X (Version None)
Quarter: 2007Q3

REPORT INFORMATION
  Report Type: 
  Country: None (occurrence: None)
  Receive Date: 20070725
  Receipt Date: 20070717
  Transmission Date: 20080115
  Serious: Yes (Hospitalization, Other)
  Sender: FDA-Public Use
  Company Number: US-ROCHE-498926

PATIENT
  Age: 78 Year
  Sex: Female
  Weight: 77.5 kg

DRUGS (7)
  1. BONIVA [Suspect]
     Indication: DRUG USE FOR UNKNOWN INDICATION
     Route: 065
  2. PHENERGAN HCL [Concomitant]
     Route: 048
  3. ALBUTEROL [Concomitant]
     Route: 048
  4. FUROSEMIDE [Concomitant]
     Route: 048
  5. OSCAL [Concomitant]
     Dosage: PATIENT TOOK 500/200 D-3 1 TABLET DAILY.
     Route: 048
  6. PREVACID [Concomitant]
     Route: 048
  7. NASACORT [Concomitant]
     Route: 050

REACTIONS (6)
  - CHEST PAIN [None]
  - DEHYDRATION [None]
  - FEBRILE NEUTROPENIA [None]
  - OEDEMA PERIPHERAL [None]
  - PANCYTOPENIA [None]
  - URETERIC CANCER [None]
